FAERS Safety Report 8412744-5 (Version None)
Quarter: 2012Q2

REPORT INFORMATION
  Report Type: 
  Country: None (occurrence: None)
  Receive Date: 20120605
  Receipt Date: 20120523
  Transmission Date: 20120825
  Serious: No
  Sender: FDA-Public Use
  Company Number: US-AMGEN-USASP2012032459

PATIENT
  Age: 73 Year
  Sex: Male

DRUGS (1)
  1. ENBREL [Suspect]
     Indication: PSORIASIS
     Dosage: 25 MG, 2 TIMES/WK
     Dates: start: 20120201

REACTIONS (5)
  - DRY SKIN [None]
  - SKIN FISSURES [None]
  - HAEMORRHAGE [None]
  - PRURITUS [None]
  - SKIN DISCOLOURATION [None]
